FAERS Safety Report 20491287 (Version 1)
Quarter: 2022Q1

REPORT INFORMATION
  Report Type: Report from Study
  Country: GB (occurrence: GB)
  Receive Date: 20220218
  Receipt Date: 20220218
  Transmission Date: 20220423
  Serious: Yes (Hospitalization, Other)
  Sender: FDA-Public Use
  Company Number: GB-NOVARTISPH-NVSC2021GB177338

PATIENT
  Sex: Female

DRUGS (6)
  1. HYRIMOZ [Suspect]
     Active Substance: ADALIMUMAB-ADAZ
     Indication: Crohn^s disease
     Dosage: 40 MG/0.8 ML EOW
     Route: 058
     Dates: start: 20210706
  2. HYRIMOZ [Suspect]
     Active Substance: ADALIMUMAB-ADAZ
     Dosage: 40 MG, Q2W (FORTNIGHTLY)
     Route: 065
  3. HYRIMOZ [Suspect]
     Active Substance: ADALIMUMAB-ADAZ
     Dosage: 160 MG
     Route: 058
  4. HYRIMOZ [Suspect]
     Active Substance: ADALIMUMAB-ADAZ
     Dosage: 40 MG, Q2W
     Route: 058
  5. ISONIAZID [Concomitant]
     Active Substance: ISONIAZID
     Indication: Tuberculosis
     Dosage: UNK (FOR SIX MONTHS)
     Route: 065
  6. LAMIVUDINE [Concomitant]
     Active Substance: LAMIVUDINE
     Indication: Herpes virus infection
     Dosage: UNK
     Route: 065

REACTIONS (11)
  - Crohn^s disease [Not Recovered/Not Resolved]
  - Haemorrhage [Not Recovered/Not Resolved]
  - Diarrhoea [Not Recovered/Not Resolved]
  - Asthenia [Unknown]
  - Abdominal pain upper [Unknown]
  - Product availability issue [Unknown]
  - Device leakage [Unknown]
  - Device difficult to use [Unknown]
  - Product dose omission issue [Unknown]
  - Accidental exposure to product [Unknown]
  - Incorrect dose administered [Unknown]
